FAERS Safety Report 15713458 (Version 1)
Quarter: 2018Q4

REPORT INFORMATION
  Report Type: Report from Study
  Country: NL (occurrence: NL)
  Receive Date: 20181212
  Receipt Date: 20181212
  Transmission Date: 20190205
  Serious: Yes (Death, Hospitalization, Other)
  Sender: FDA-Public Use
  Company Number: NL-AMGEN-NLDSL2018157637

PATIENT
  Age: 73 Year
  Sex: Female
  Weight: 81 kg

DRUGS (7)
  1. BISOPROLOL [Concomitant]
     Active Substance: BISOPROLOL
     Dosage: 2.5 1DD1, UNK
  2. PANTROL [Concomitant]
     Dosage: 20 1DD1
  3. VALSARTAN. [Concomitant]
     Active Substance: VALSARTAN
     Dosage: 80 1DD1, UNK
  4. REPATHA [Suspect]
     Active Substance: EVOLOCUMAB
     Dosage: UNK
     Route: 058
  5. CAD [Concomitant]
     Active Substance: CALCIUM CARBONATE\CHOLECALCIFEROL
     Dosage: 500/800 1DD1, UNK
  6. REPATHA [Suspect]
     Active Substance: EVOLOCUMAB
     Indication: HYPERCHOLESTEROLAEMIA
     Dosage: 140 MG/ML, Q2WK
     Route: 058
  7. DCAL [Concomitant]
     Dosage: 80 1DD1, UNK

REACTIONS (4)
  - Cholecystectomy [Fatal]
  - Colectomy [Unknown]
  - Post procedural complication [Fatal]
  - Hernia [Unknown]

NARRATIVE: CASE EVENT DATE: 201612
